FAERS Safety Report 10830994 (Version 1)
Quarter: 2015Q1

REPORT INFORMATION
  Report Type: Report from Study
  Country: US (occurrence: US)
  Receive Date: 20150219
  Receipt Date: 20150219
  Transmission Date: 20150721
  Serious: Yes (Other)
  Sender: FDA-Public Use
  Company Number: US-ABBVIE-14P-163-1195349-00

PATIENT
  Age: 4 Year
  Sex: Female
  Weight: 15.6 kg

DRUGS (5)
  1. ATROPINE [Concomitant]
     Active Substance: ATROPINE
     Indication: UVEITIS
     Dosage: ONE DROP EACH EYE
  2. ATROPINE [Concomitant]
     Active Substance: ATROPINE
     Indication: IRITIS
  3. PREDNISONE ACETATE [Concomitant]
     Active Substance: PREDNISONE ACETATE
     Indication: IRITIS
  4. HUMIRA [Suspect]
     Active Substance: ADALIMUMAB
     Indication: UVEITIS
     Route: 058
     Dates: start: 20131107
  5. PREDNISONE ACETATE [Concomitant]
     Active Substance: PREDNISONE ACETATE
     Indication: UVEITIS
     Dosage: ONE DROP EACH EYE

REACTIONS (3)
  - Chest pain [Recovered/Resolved]
  - Chest pain [Recovered/Resolved]
  - Palpitations [Recovered/Resolved]

NARRATIVE: CASE EVENT DATE: 201401
